FAERS Safety Report 10003536 (Version 1)
Quarter: 2014Q1

REPORT INFORMATION
  Report Type: Spontaneous
  Country: US (occurrence: US)
  Receive Date: 20140312
  Receipt Date: 20140312
  Transmission Date: 20141002
  Serious: No
  Sender: FDA-Public Use
  Company Number: US-ABBVIE-13P-163-1134038-00

PATIENT
  Age: 11 Year
  Sex: Male

DRUGS (3)
  1. DEPAKOTE [Suspect]
     Indication: PRODUCT USED FOR UNKNOWN INDICATION
     Dosage: 250 MILLIGRAMS DAILY
     Dates: start: 20130525, end: 20130731
  2. DEPAKOTE [Suspect]
     Dosage: 250 MILLIGRAMS DAILY
     Dates: start: 20130809, end: 20130810
  3. DEPAKOTE [Suspect]
     Indication: PRODUCT USED FOR UNKNOWN INDICATION
     Dosage: 500 MILLIGRAMS DAILY
     Dates: start: 20130801, end: 20130808

REACTIONS (6)
  - Feeling abnormal [Recovering/Resolving]
  - Suicidal ideation [Recovered/Resolved]
  - Fatigue [Recovering/Resolving]
  - Feeling cold [Recovering/Resolving]
  - Chills [Recovering/Resolving]
  - Decreased appetite [Recovering/Resolving]
